FAERS Safety Report 24122324 (Version 3)
Quarter: 2025Q4

REPORT INFORMATION
  Report Type: Spontaneous
  Country: US (occurrence: US)
  Receive Date: 20240722
  Receipt Date: 20251128
  Transmission Date: 20260117
  Serious: No
  Sender: SANOFI AVENTIS
  Company Number: US-SA-SAC20240717001368

PATIENT
  Age: 32 Year
  Sex: Male

DRUGS (4)
  1. ALPROLIX [Suspect]
     Active Substance: EFTRENONACOG ALFA
     Indication: Factor IX deficiency
     Dosage: 4010 UNITS (3609-4411) SLOW IV PUSH EVERY MONDAY AND THURSDAY PRIOR TO WORK SHIFT EACH WEEK AND AS N
     Route: 042
     Dates: start: 202407
  2. ALPROLIX [Suspect]
     Active Substance: EFTRENONACOG ALFA
     Indication: Factor IX deficiency
     Dosage: 4010 UNITS (3609-4411) SLOW IV PUSH EVERY MONDAY AND THURSDAY PRIOR TO WORK SHIFT EACH WEEK AND AS N
     Route: 042
     Dates: start: 202407
  3. ALPROLIX [Suspect]
     Active Substance: EFTRENONACOG ALFA
     Dosage: 4456 UNITS (4011-4901) SLOW IV PUSH 2 TIMES A WEEK ON MONDAY AND THURSDAY PRIOR TO WORK SHIFT EACH W
     Route: 042
  4. ALPROLIX [Suspect]
     Active Substance: EFTRENONACOG ALFA
     Dosage: 4456 UNITS (4011-4901) SLOW IV PUSH 2 TIMES A WEEK ON MONDAY AND THURSDAY PRIOR TO WORK SHIFT EACH W
     Route: 042

REACTIONS (2)
  - Haemorrhage [Unknown]
  - Arthralgia [Unknown]

NARRATIVE: CASE EVENT DATE: 20240701
